FAERS Safety Report 9351798 (Version 1)
Quarter: 2013Q2

REPORT INFORMATION
  Report Type: Spontaneous
  Country: US (occurrence: US)
  Receive Date: 20130617
  Receipt Date: 20130617
  Transmission Date: 20140414
  Serious: Yes (Death)
  Sender: FDA-Public Use
  Company Number: US-BIOGENIDEC-2013BI052425

PATIENT
  Sex: Female

DRUGS (6)
  1. AVONEX [Suspect]
     Indication: PRODUCT USED FOR UNKNOWN INDICATION
     Route: 030
  2. EYE DROPS (NOS) [Concomitant]
  3. SENOKOT [Concomitant]
  4. MULTIPLE VITAMINS [Concomitant]
  5. OS-CAL [Concomitant]
  6. ALEVE [Concomitant]

REACTIONS (1)
  - Death [Fatal]
